FAERS Safety Report 12777042 (Version 1)
Quarter: 2016Q3

REPORT INFORMATION
  Report Type: Report from Study
  Country: CH (occurrence: CH)
  Receive Date: 20160923
  Receipt Date: 20160923
  Transmission Date: 20161109
  Serious: Yes (Death, Life-Threatening, Hospitalization)
  Sender: FDA-Public Use
  Company Number: CH-ASTRAZENECA-2013SE42706

PATIENT
  Age: 19311 Day
  Sex: Female
  Weight: 82 kg

DRUGS (2)
  1. AZD2281 [Suspect]
     Active Substance: OLAPARIB
     Indication: OVARIAN CANCER
     Route: 048
     Dates: start: 20130604, end: 20130610
  2. AZD2281 [Suspect]
     Active Substance: OLAPARIB
     Indication: OVARIAN CANCER
     Route: 048
     Dates: start: 20110606, end: 20130528

REACTIONS (5)
  - Myelodysplastic syndrome [Fatal]
  - Respiratory failure [Fatal]
  - Platelet count decreased [Recovered/Resolved]
  - Anaemia [Recovered/Resolved]
  - Haematuria [Fatal]

NARRATIVE: CASE EVENT DATE: 20130529
